FAERS Safety Report 10036038 (Version 1)
Quarter: 2014Q1

REPORT INFORMATION
  Report Type: Spontaneous
  Country: IT (occurrence: IT)
  Receive Date: 20140325
  Receipt Date: 20140325
  Transmission Date: 20141002
  Serious: Yes (Life-Threatening, Hospitalization, Other)
  Sender: FDA-Public Use
  Company Number: IT-BAYER-2014-042167

PATIENT
  Sex: Female

DRUGS (8)
  1. ACETYLSALICYLIC ACID({=100 MG) [Suspect]
     Route: 064
  2. ACETYLSALICYLIC ACID({=100 MG) [Suspect]
     Route: 064
  3. NIFEDIPINE [Concomitant]
     Route: 064
  4. NIFEDIPINE [Concomitant]
     Route: 064
  5. METHYLDOPA [Concomitant]
  6. METHYLDOPA [Concomitant]
  7. ENOXAPARIN [Concomitant]
     Dosage: UNK UNK, QD
     Route: 064
  8. ENOXAPARIN [Concomitant]
     Dosage: UNK UNK, QD
     Route: 064

REACTIONS (4)
  - Low birth weight baby [None]
  - Cerebral haemorrhage [None]
  - Maternal exposure during pregnancy [None]
  - Premature baby [None]
